FAERS Safety Report 14663389 (Version 4)
Quarter: 2019Q3

REPORT INFORMATION
  Report Type: Spontaneous
  Country: US (occurrence: US)
  Receive Date: 20180321
  Receipt Date: 20190703
  Transmission Date: 20191004
  Serious: Yes (Other)
  Sender: FDA-Public Use
  Company Number: US-PFIZER INC-2017458327

PATIENT
  Age: 72 Year
  Sex: Female
  Weight: 68.27 kg

DRUGS (4)
  1. LYRICA [Suspect]
     Active Substance: PREGABALIN
     Indication: OSTEOARTHRITIS
     Dosage: 75 MG, TWICE DAILY
     Route: 048
     Dates: start: 2015
  2. LYRICA [Suspect]
     Active Substance: PREGABALIN
     Dosage: 75 MG, 2X/DAY (ONCE IN THE MORNING AND ONCE AT NIGHT)
     Route: 048
  3. PREMARIN [Concomitant]
     Active Substance: ESTROGENS, CONJUGATED
     Dosage: UNK
  4. LYRICA [Suspect]
     Active Substance: PREGABALIN
     Indication: PAIN
     Dosage: 50 MG,  EVERY 8 HOURS AS NEEDED
     Route: 048

REACTIONS (10)
  - Insomnia [Recovered/Resolved]
  - Product dose omission [Unknown]
  - Drug dependence [Recovered/Resolved]
  - Hyperhidrosis [Recovered/Resolved]
  - Nausea [Unknown]
  - Malaise [Unknown]
  - Withdrawal syndrome [Unknown]
  - Eye pain [Recovered/Resolved]
  - Eye irritation [Unknown]
  - Dyspnoea [Unknown]
